FAERS Safety Report 8988584 (Version 1)
Quarter: 2012Q4

REPORT INFORMATION
  Report Type: Spontaneous
  Country: US (occurrence: None)
  Receive Date: 20121218
  Receipt Date: 20121218
  Transmission Date: 20130627
  Serious: Yes (Other)
  Sender: FDA-Public Use
  Company Number: AUR-APL-2012-05388

PATIENT
  Age: 63 Year
  Sex: Female
  Weight: 81.63 kg

DRUGS (2)
  1. METFORMIN (METFORMIN) [Suspect]
     Indication: DIABETES
     Route: 048
  2. LYRICA [Suspect]
     Indication: EAR DISORDER
     Dates: start: 201205

REACTIONS (4)
  - Dysarthria [None]
  - Syncope [None]
  - Visual impairment [None]
  - Blood glucose increased [None]
